FAERS Safety Report 20520108 (Version 1)
Quarter: 2022Q1

REPORT INFORMATION
  Report Type: Spontaneous
  Country: US (occurrence: US)
  Receive Date: 20220225
  Receipt Date: 20220225
  Transmission Date: 20220424
  Serious: Yes (Other)
  Sender: FDA-Public Use
  Company Number: US-ELI_LILLY_AND_COMPANY-US202201009995

PATIENT
  Sex: Male

DRUGS (2)
  1. CYRAMZA [Suspect]
     Active Substance: RAMUCIRUMAB
     Indication: Non-small cell lung cancer
     Dosage: 500 MG, UNKNOWN
  2. DOCETAXEL [Concomitant]
     Active Substance: DOCETAXEL
     Indication: Non-small cell lung cancer

REACTIONS (2)
  - Interstitial lung disease [Unknown]
  - COVID-19 [Unknown]
